FAERS Safety Report 20855873 (Version 1)
Quarter: 2022Q2

REPORT INFORMATION
  Report Type: Spontaneous
  Country: US (occurrence: None)
  Receive Date: 20220520
  Receipt Date: 20220520
  Transmission Date: 20220721
  Serious: Yes (Life-Threatening, Other)
  Sender: FDA-Public Use
  Company Number: 2022A189803

PATIENT
  Sex: Male
  Weight: 63.5 kg

DRUGS (3)
  1. TAGRISSO [Suspect]
     Active Substance: OSIMERTINIB
     Indication: Lung carcinoma cell type unspecified stage 0
     Route: 048
     Dates: start: 20220114
  2. CITALOPRAM [Concomitant]
     Active Substance: CITALOPRAM HYDROBROMIDE
     Dates: start: 20220131
  3. CALCIUM [Concomitant]
     Active Substance: CALCIUM
     Dates: start: 20220131

REACTIONS (13)
  - Cardiac arrest [Unknown]
  - Aphasia [Not Recovered/Not Resolved]
  - Loss of consciousness [Unknown]
  - Tongue movement disturbance [Unknown]
  - Facial paralysis [Unknown]
  - Hypertension [Unknown]
  - Migraine [Not Recovered/Not Resolved]
  - Dysgraphia [Not Recovered/Not Resolved]
  - Insomnia [Not Recovered/Not Resolved]
  - Weight decreased [Not Recovered/Not Resolved]
  - Decreased appetite [Not Recovered/Not Resolved]
  - Multiple allergies [Not Recovered/Not Resolved]
  - Pruritus [Not Recovered/Not Resolved]

NARRATIVE: CASE EVENT DATE: 20220509
